FAERS Safety Report 9452707 (Version 3)
Quarter: 2014Q1

REPORT INFORMATION
  Report Type: Report from Study
  Country: CA (occurrence: CA)
  Receive Date: 20130812
  Receipt Date: 20140304
  Transmission Date: 20141002
  Serious: Yes (Other)
  Sender: FDA-Public Use
  Company Number: CA-ROCHE-1259617

PATIENT
  Age: 69 Year
  Sex: Male
  Weight: 105 kg

DRUGS (21)
  1. RITUXAN [Suspect]
     Indication: RHEUMATOID ARTHRITIS
     Route: 042
     Dates: start: 20130725
  2. METHYLPREDNISOLONE [Suspect]
     Indication: PREMEDICATION
     Route: 042
     Dates: start: 20130725
  3. DIPHENHYDRAMINE HCL [Concomitant]
     Indication: PREMEDICATION
     Route: 048
     Dates: start: 20130725
  4. ACETAMINOPHEN [Concomitant]
     Indication: PREMEDICATION
     Route: 048
     Dates: start: 20130725
  5. ACETAMINOPHEN [Concomitant]
     Route: 048
     Dates: start: 20130806
  6. FUROSEMIDE [Concomitant]
  7. METFORMIN [Concomitant]
     Route: 065
  8. PREDNISONE [Concomitant]
  9. JANUVIA [Concomitant]
  10. GABAPENTIN [Concomitant]
  11. RAMIPRIL [Concomitant]
  12. NITRO PATCH [Concomitant]
  13. CIPRALEX [Concomitant]
  14. FOLIC ACID [Concomitant]
  15. DOMPERIDONE [Concomitant]
  16. SENOKOT [Concomitant]
  17. FERROUS GLUCONATE [Concomitant]
  18. CLONAZEPAM [Concomitant]
  19. ROSUVASTATIN [Concomitant]
  20. GLICLAZIDE [Concomitant]
  21. METHOTREXATE [Concomitant]
     Route: 058

REACTIONS (3)
  - Blood glucose increased [Recovered/Resolved]
  - Headache [Recovered/Resolved]
  - Cellulitis [Not Recovered/Not Resolved]
